FAERS Safety Report 14679308 (Version 3)
Quarter: 2019Q2

REPORT INFORMATION
  Report Type: Spontaneous
  Country: US (occurrence: US)
  Receive Date: 20180326
  Receipt Date: 20190429
  Transmission Date: 20190711
  Serious: Yes (Hospitalization, Other)
  Sender: FDA-Public Use
  Company Number: US-PFIZER INC-2018122317

PATIENT
  Age: 67 Year
  Sex: Female

DRUGS (7)
  1. XELJANZ XR [Suspect]
     Active Substance: TOFACITINIB CITRATE
     Dosage: 11 MG, DAILY
     Dates: start: 20160815, end: 201809
  2. LEVOTHYROXINE. [Concomitant]
     Active Substance: LEVOTHYROXINE
     Indication: THYROID DISORDER
     Dosage: 0.1 MG, 1X/DAY
     Dates: start: 2008
  3. ROSUVASTATIN. [Concomitant]
     Active Substance: ROSUVASTATIN
     Indication: BLOOD CHOLESTEROL ABNORMAL
     Dosage: 10 MG, 1X/DAY
  4. BABY ASPIRIN [Concomitant]
     Active Substance: ASPIRIN
     Dosage: 81 MG, 1X/DAY
     Dates: start: 2008
  5. MELOXICAM. [Concomitant]
     Active Substance: MELOXICAM
     Indication: ANTIINFLAMMATORY THERAPY
     Dosage: 15 MG, 1X/DAY
     Dates: start: 20190119
  6. ZOLPIDEM [Concomitant]
     Active Substance: ZOLPIDEM\ZOLPIDEM TARTRATE
     Dosage: UNK
     Dates: start: 2000
  7. XELJANZ XR [Suspect]
     Active Substance: TOFACITINIB CITRATE
     Indication: RHEUMATOID ARTHRITIS
     Dosage: 11 MG, UNK
     Dates: start: 2017

REACTIONS (3)
  - Non-Hodgkin^s lymphoma [Unknown]
  - Back pain [Not Recovered/Not Resolved]
  - B-cell lymphoma [Not Recovered/Not Resolved]

NARRATIVE: CASE EVENT DATE: 20170209
